FAERS Safety Report 7962438 (Version 3)
Quarter: 2013Q2

REPORT INFORMATION
  Report Type: Spontaneous
  Country: US (occurrence: US)
  Receive Date: 20110526
  Receipt Date: 20130422
  Transmission Date: 20140414
  Serious: Yes (Hospitalization, Other)
  Sender: FDA-Public Use
  Company Number: US-BAYER-2011-044946

PATIENT
  Age: 22 Year
  Sex: Female
  Weight: 59 kg

DRUGS (9)
  1. YASMIN [Suspect]
     Indication: ACNE
     Dosage: UNK
     Dates: start: 200801, end: 200805
  2. YASMIN [Suspect]
     Indication: MENSTRUATION IRREGULAR
  3. YASMIN [Suspect]
     Indication: CONTRACEPTION
  4. OCELLA [Suspect]
     Indication: ACNE
     Dosage: UNK
     Route: 048
     Dates: start: 200806, end: 200904
  5. OCELLA [Suspect]
     Indication: MENSTRUATION IRREGULAR
  6. OCELLA [Suspect]
     Indication: CONTRACEPTION
  7. MINOCYCLINE [Concomitant]
     Indication: ACNE
     Route: 048
  8. ADDERALL XR [Concomitant]
     Indication: ATTENTION DEFICIT/HYPERACTIVITY DISORDER
     Dosage: 10 MG, QD
     Route: 048
  9. IRON SUPPLEMENT [Concomitant]
     Indication: IRON DEFICIENCY ANAEMIA

REACTIONS (12)
  - Pulmonary embolism [None]
  - Deep vein thrombosis [None]
  - Injury [None]
  - Pain [None]
  - Venous injury [None]
  - Venous thrombosis limb [None]
  - Anxiety [None]
  - Anhedonia [None]
  - Fear [None]
  - Psychological trauma [None]
  - Paranoia [None]
  - Mental disorder [None]
